FAERS Safety Report 18313528 (Version 1)
Quarter: 2020Q3

REPORT INFORMATION
  Report Type: Spontaneous
  Country: ET (occurrence: ET)
  Receive Date: 20200925
  Receipt Date: 20200925
  Transmission Date: 20201103
  Serious: Yes (Hospitalization)
  Sender: FDA-Public Use
  Company Number: NVSC2020ET256331

PATIENT
  Sex: Male

DRUGS (1)
  1. GLIVEC [Suspect]
     Active Substance: IMATINIB MESYLATE
     Indication: ACUTE LYMPHOCYTIC LEUKAEMIA
     Dosage: 600 MG
     Route: 065

REACTIONS (5)
  - White blood cell count increased [Unknown]
  - Blindness [Unknown]
  - Nervous system disorder [Unknown]
  - CSF white blood cell count increased [Unknown]
  - Acute lymphocytic leukaemia recurrent [Unknown]
